FAERS Safety Report 9069098 (Version 1)
Quarter: 2013Q1

REPORT INFORMATION
  Report Type: Spontaneous
  Country: BR (occurrence: BR)
  Receive Date: 20130128
  Receipt Date: 20130128
  Transmission Date: 20140127
  Serious: Yes (Hospitalization, Other)
  Sender: FDA-Public Use
  Company Number: BR-AMGEN-BRACT2012010980

PATIENT
  Age: 65 Year
  Sex: Female
  Weight: 72 kg

DRUGS (15)
  1. ENBREL [Suspect]
     Indication: RHEUMATOID ARTHRITIS
     Dosage: 25 MG, 2X/WEEK
     Route: 058
     Dates: start: 20110817
  2. FOLIC ACID [Concomitant]
     Indication: ARTHRITIS
     Dosage: 10 MG, WEEKLY (ON SUNDAYS)
     Dates: start: 2009
  3. FOLIC ACID [Concomitant]
     Indication: RHEUMATOID ARTHRITIS
  4. ENALAPRIL [Concomitant]
     Indication: HYPERTENSION
     Dosage: 10 MG, ONE TABLET 1X/DAY
     Dates: start: 2009
  5. METHOTREXATE [Concomitant]
     Indication: ARTHRITIS
     Dosage: 2.5MG (3 TABLETS IN THE MORNING AND 3 TABLETS AT NIGHT ON FRIDAYS) AND (2 TABLETS ON SATURDAY)
     Dates: start: 2009
  6. METHOTREXATE [Concomitant]
     Indication: RHEUMATOID ARTHRITIS
     Dosage: 15 MG (6 TABLETS OF 2.5MG), ONCE WEEKLY
  7. OMEPRAZOLE [Concomitant]
     Indication: GASTRIC DISORDER
     Dosage: 20 MG, 1X/DAY
     Dates: start: 201005
  8. PREDNISONE [Concomitant]
     Indication: ARTHRITIS
     Dosage: 5 MG, 1X/DAY
     Dates: start: 2009
  9. PREDNISONE [Concomitant]
     Indication: RHEUMATOID ARTHRITIS
  10. XEFO [Concomitant]
     Indication: ARTHRITIS
     Dosage: USE FOR 45 DAYS
     Dates: start: 20110817
  11. PARACETAMOL [Concomitant]
     Indication: PAIN
     Dosage: 750 MG, AS NEEDED
  12. NAPROXEN [Concomitant]
     Dosage: UNK
  13. CALCIUM [Concomitant]
     Dosage: UNK
  14. VITAMIN D /00107901/ [Concomitant]
     Dosage: UNK
     Dates: start: 201212
  15. CORTICORTEN [Concomitant]
     Indication: ARTHRITIS
     Dosage: 5 MG, 1X/DAY

REACTIONS (31)
  - Musculoskeletal pain [Unknown]
  - Pigmentation disorder [Not Recovered/Not Resolved]
  - Fatigue [Not Recovered/Not Resolved]
  - Pain [Not Recovered/Not Resolved]
  - Tremor [Not Recovered/Not Resolved]
  - Hyperhidrosis [Not Recovered/Not Resolved]
  - Dizziness [Not Recovered/Not Resolved]
  - Rhinorrhoea [Not Recovered/Not Resolved]
  - Cough [Not Recovered/Not Resolved]
  - Arthralgia [Unknown]
  - Skin reaction [Unknown]
  - Diarrhoea [Unknown]
  - Pyrexia [Unknown]
  - Pruritus [Recovered/Resolved]
  - Joint stiffness [Unknown]
  - Local swelling [Unknown]
  - Blood pressure abnormal [Unknown]
  - Balance disorder [Unknown]
  - Nausea [Unknown]
  - Feeling abnormal [Unknown]
  - Headache [Unknown]
  - Mydriasis [Unknown]
  - Formication [Unknown]
  - Impulse-control disorder [Unknown]
  - Retching [Unknown]
  - Asthenia [Unknown]
  - Nosocomial infection [Unknown]
  - Pneumonia [Unknown]
  - Infection [Unknown]
  - Varicella [Unknown]
  - Dysentery [Unknown]
